FAERS Safety Report 12979486 (Version 2)
Quarter: 2017Q1

REPORT INFORMATION
  Report Type: Spontaneous
  Country: JP (occurrence: JP)
  Receive Date: 20161128
  Receipt Date: 20170321
  Transmission Date: 20170428
  Serious: Yes (Other)
  Sender: FDA-Public Use
  Company Number: JP-PFIZER INC-2016543493

PATIENT
  Sex: Female

DRUGS (3)
  1. PROVERA [Suspect]
     Active Substance: MEDROXYPROGESTERONE ACETATE
     Dosage: 2.5 MG, DAILY
     Route: 048
  2. PROVERA [Suspect]
     Active Substance: MEDROXYPROGESTERONE ACETATE
     Dosage: 5 MG, DAILY
     Route: 048
  3. PROVERA [Suspect]
     Active Substance: MEDROXYPROGESTERONE ACETATE
     Indication: DIZZINESS
     Dosage: 2.5 MG, DAILY
     Route: 048
     Dates: start: 201611

REACTIONS (4)
  - Drug ineffective for unapproved indication [Recovering/Resolving]
  - Vision blurred [Recovering/Resolving]
  - Papilloedema [Unknown]
  - Diplopia [Recovering/Resolving]

NARRATIVE: CASE EVENT DATE: 201612
